FAERS Safety Report 7203714-3 (Version None)
Quarter: 2010Q4

REPORT INFORMATION
  Report Type: 
  Country: None (occurrence: None)
  Receive Date: 20101217
  Receipt Date: 20101213
  Transmission Date: 20110411
  Serious: Yes (Death)
  Sender: FDA-Public Use
  Company Number: DKLU1065924

PATIENT
  Sex: Female

DRUGS (1)
  1. SABRIL [Suspect]
     Indication: INFANTILE SPASMS
     Dosage: 375 MILLIGRAM(S), 2 IN 1 D, ORAL
     Route: 048
     Dates: start: 20100401

REACTIONS (1)
  - DEATH [None]
